FAERS Safety Report 18473966 (Version 1)
Quarter: 2020Q4

REPORT INFORMATION
  Report Type: Report from Study
  Country: US (occurrence: US)
  Receive Date: 20201106
  Receipt Date: 20201106
  Transmission Date: 20210114
  Serious: Yes (Other)
  Sender: FDA-Public Use
  Company Number: NVSC2020US294067

PATIENT
  Age: 78 Year
  Sex: Male

DRUGS (1)
  1. ENTRESTO [Suspect]
     Active Substance: SACUBITRIL\VALSARTAN
     Indication: DEAFNESS
     Dosage: 24.26 MG, BID
     Route: 048
     Dates: start: 20201027

REACTIONS (2)
  - Product use in unapproved indication [Unknown]
  - Deafness [Unknown]

NARRATIVE: CASE EVENT DATE: 20201027
